FAERS Safety Report 10029161 (Version 1)
Quarter: 2014Q1

REPORT INFORMATION
  Report Type: Spontaneous
  Country: GB (occurrence: GB)
  Receive Date: 20140321
  Receipt Date: 20140321
  Transmission Date: 20141002
  Serious: Yes (Other)
  Sender: FDA-Public Use
  Company Number: 2014SP001425

PATIENT
  Age: 3 Year
  Sex: Female
  Weight: 20.9 kg

DRUGS (4)
  1. METHOTREXATE [Suspect]
     Indication: JUVENILE IDIOPATHIC ARTHRITIS
     Route: 058
     Dates: start: 20140124, end: 20140130
  2. FOLIC ACID [Concomitant]
     Route: 048
  3. LANSOPRAZOLE [Concomitant]
     Route: 048
  4. TRIAMCINOLONE [Concomitant]
     Route: 014

REACTIONS (2)
  - Injection site vesicles [Recovering/Resolving]
  - Erythema [Not Recovered/Not Resolved]
